FAERS Safety Report 9064926 (Version 1)
Quarter: 2013Q1

REPORT INFORMATION
  Report Type: Report from Study
  Country: US (occurrence: US)
  Receive Date: 20130131
  Receipt Date: 20130131
  Transmission Date: 20140127
  Serious: No
  Sender: FDA-Public Use
  Company Number: US-ABBOTT-12P-163-1009723-00

PATIENT
  Sex: Female

DRUGS (19)
  1. HUMIRA [Suspect]
     Indication: CROHN^S DISEASE
     Dates: start: 20120917, end: 20120917
  2. HUMIRA [Suspect]
     Dates: start: 20121001, end: 20121001
  3. HUMIRA [Suspect]
     Dates: start: 20121015
  4. ZOLOFT [Suspect]
     Indication: ANXIETY
     Dates: start: 201210
  5. ZOLOFT [Suspect]
     Indication: DEPRESSION
  6. ESCITALOPRAM [Concomitant]
     Indication: DEPRESSION
     Dosage: EVERY MORNING
     Dates: start: 201211
  7. ESCITALOPRAM [Concomitant]
     Indication: ANXIETY
  8. ASACOL [Concomitant]
     Indication: CROHN^S DISEASE
  9. RANITIDINE [Concomitant]
     Indication: GASTROOESOPHAGEAL REFLUX DISEASE
  10. OMEPRAZOLE [Concomitant]
     Indication: DYSPEPSIA
  11. FOLIC ACID [Concomitant]
     Indication: PRODUCT USED FOR UNKNOWN INDICATION
  12. CALCIUM [Concomitant]
     Indication: SUPPLEMENTATION THERAPY
  13. VITAMIN D [Concomitant]
     Indication: VITAMIN SUPPLEMENTATION
  14. METFORMIN [Concomitant]
     Indication: DIABETES MELLITUS
  15. GLIPIZIDE [Concomitant]
     Indication: DIABETES MELLITUS
  16. LISINOPRIL [Concomitant]
     Indication: HYPERTENSION
  17. LISINOPRIL HCTZ [Concomitant]
     Indication: HYPERTENSION
     Dosage: 20-12.5 MILLIGRAM
  18. LISINOPRIL HCTZ [Concomitant]
     Indication: DIURETIC THERAPY
  19. SIMVASTATIN [Concomitant]
     Indication: BLOOD CHOLESTEROL INCREASED

REACTIONS (4)
  - Nasopharyngitis [Not Recovered/Not Resolved]
  - Pruritus [Not Recovered/Not Resolved]
  - Erythema [Not Recovered/Not Resolved]
  - Rash [Not Recovered/Not Resolved]
